FAERS Safety Report 8797473 (Version 1)
Quarter: 2012Q4

REPORT INFORMATION
  Report Type: 
  Country: US (occurrence: US)
  Receive Date: 20120920
  Receipt Date: 20120920
  Transmission Date: 20130627
  Serious: No
  Sender: FDA-Public Use
  Company Number: US-009507513-1209USA004926

PATIENT
  Age: 86 Year
  Sex: Male

DRUGS (2)
  1. MIRALAX [Suspect]
     Indication: PRURITUS
     Dosage: UNK, Unknown
     Route: 048
  2. MIRALAX [Suspect]
     Indication: RASH

REACTIONS (2)
  - Drug ineffective for unapproved indication [Unknown]
  - Off label use [Unknown]
